FAERS Safety Report 10064302 (Version 2)
Quarter: 2014Q2

REPORT INFORMATION
  Report Type: Report from Study
  Country: US (occurrence: US)
  Receive Date: 20140408
  Receipt Date: 20140423
  Transmission Date: 20141212
  Serious: Yes (Other)
  Sender: FDA-Public Use
  Company Number: US-JNJFOC-20140318887

PATIENT
  Age: 54 Year
  Sex: Male

DRUGS (10)
  1. STELARA [Suspect]
     Indication: PSORIASIS
     Route: 058
     Dates: start: 20130816, end: 20140305
  2. LIPITOR [Concomitant]
     Indication: BLOOD CHOLESTEROL
     Route: 065
     Dates: start: 2012
  3. PLAVIX [Concomitant]
     Route: 048
     Dates: start: 2012
  4. TOPROL XL [Concomitant]
     Indication: HYPERTENSION
     Route: 048
     Dates: start: 2012
  5. DIOVAN [Concomitant]
     Route: 065
     Dates: start: 2012
  6. BABY ASPIRIN [Concomitant]
     Route: 048
     Dates: start: 20120118
  7. MICARDIS [Concomitant]
     Dosage: 40 (UNITS UNSPECIFIED)
     Route: 065
     Dates: start: 20120118
  8. ALBUTEROL [Concomitant]
     Dosage: 2 PUFFS
     Route: 065
     Dates: start: 20130204
  9. ALBUTEROL [Concomitant]
     Indication: BRONCHITIS
     Route: 065
  10. INDOCIN [Concomitant]
     Indication: ARTHRALGIA
     Route: 048

REACTIONS (1)
  - Bladder transitional cell carcinoma [Not Recovered/Not Resolved]
